FAERS Safety Report 8438266-3 (Version None)
Quarter: 2012Q2

REPORT INFORMATION
  Report Type: 
  Country: None (occurrence: None)
  Receive Date: 20120614
  Receipt Date: 20120612
  Transmission Date: 20120825
  Serious: Yes (Congenital Anomaly)
  Sender: FDA-Public Use
  Company Number: GXKR2012DE001966

PATIENT

DRUGS (3)
  1. LAMOTRIGINE [Suspect]
     Dosage: MATERNAL DOSE: 75 MG/D UNTIL 38.1 GW
     Route: 064
  2. LEVOTHYROXINE SODIUM [Concomitant]
     Dosage: MATERNAL DOSE: UKN UNTIL 38.1 GW
     Route: 064
  3. ANTELEPSIN [Suspect]
     Dosage: MATERNAL DOSE: 0.5 MG/D UNTIL 38.1 GW
     Route: 064

REACTIONS (3)
  - FOETAL EXPOSURE DURING PREGNANCY [None]
  - ATRIAL SEPTAL DEFECT [None]
  - VENTRICULAR SEPTAL DEFECT [None]
